FAERS Safety Report 6643345-7 (Version None)
Quarter: 2010Q1

REPORT INFORMATION
  Report Type: 
  Country: None (occurrence: None)
  Receive Date: 20100319
  Receipt Date: 20100308
  Transmission Date: 20100710
  Serious: Yes (Hospitalization, Other)
  Sender: FDA-Public Use
  Company Number: PHHY2010CN16684

PATIENT
  Sex: Female
  Weight: 1.1 kg

DRUGS (1)
  1. CYCLOSPORINE [Suspect]
     Dosage: MATERNAL DOSE: 175 MG QD
     Route: 064
     Dates: start: 20060601

REACTIONS (7)
  - DRUG EXPOSURE DURING PREGNANCY [None]
  - FOETAL DISTRESS SYNDROME [None]
  - FOETAL HEART RATE DECREASED [None]
  - PREMATURE BABY [None]
  - SMALL FOR DATES BABY [None]
  - UMBILICAL CORD AROUND NECK [None]
  - UMBILICAL CORD VASCULAR DISORDER [None]
